FAERS Safety Report 20780897 (Version 1)
Quarter: 2022Q2

REPORT INFORMATION
  Report Type: Report from Study
  Country: CA (occurrence: CA)
  Receive Date: 20220504
  Receipt Date: 20220504
  Transmission Date: 20220721
  Serious: Yes (Other)
  Sender: FDA-Public Use
  Company Number: CA-TAKEDA-2016TUS022419

PATIENT
  Age: 67 Year
  Sex: Female

DRUGS (6)
  1. VEDOLIZUMAB [Suspect]
     Active Substance: VEDOLIZUMAB
     Indication: Crohn^s disease
     Dosage: 300 MILLIGRAM
     Route: 042
     Dates: start: 20161025
  2. VEDOLIZUMAB [Suspect]
     Active Substance: VEDOLIZUMAB
     Dosage: 300 MILLIGRAM
     Route: 042
  3. IRON [Concomitant]
     Active Substance: IRON
     Dosage: UNK
     Dates: start: 201511
  4. BENADRYL                           /00000402/ [Concomitant]
     Indication: Premedication
     Dosage: 25 MILLIGRAM
     Route: 042
     Dates: start: 20161025
  5. CORTISONE [Concomitant]
     Active Substance: CORTISONE
     Indication: Premedication
     Dosage: UNK
     Dates: start: 20161025
  6. METHYLPREDNISOLONE [Concomitant]
     Active Substance: METHYLPREDNISOLONE
     Indication: Premedication
     Dosage: 100 MILLIGRAM
     Route: 042

REACTIONS (4)
  - Haematochezia [Recovered/Resolved]
  - Gastrointestinal pain [Unknown]
  - COVID-19 [Unknown]
  - Constipation [Unknown]

NARRATIVE: CASE EVENT DATE: 20160101
